FAERS Safety Report 5325046-0 (Version None)
Quarter: 2007Q2

REPORT INFORMATION
  Report Type: 
  Country: None (occurrence: None)
  Receive Date: 20070228
  Receipt Date: 20061020
  Transmission Date: 20071010
  Serious: No
  Sender: FDA-Public Use
  Company Number: 2006UW20312

PATIENT
  Age: 45 Year
  Sex: Female
  Weight: 63.502 kg

DRUGS (2)
  1. ACCOLATE [Suspect]
     Indication: MUSCLE CONTRACTURE
     Dosage: 20 MG BID PO
     Route: 048
     Dates: start: 20060301
  2. TAMOXIFEN [Concomitant]

REACTIONS (1)
  - ARTHRALGIA [None]
